FAERS Safety Report 23038614 (Version 1)
Quarter: 2023Q4

REPORT INFORMATION
  Report Type: Report from Study
  Country: IT (occurrence: None)
  Receive Date: 20231006
  Receipt Date: 20231006
  Transmission Date: 20240110
  Serious: Yes (Hospitalization)
  Sender: FDA-Public Use
  Company Number: 2023A222278

PATIENT
  Age: 52 Year
  Sex: Female

DRUGS (2)
  1. QUETIAPINE [Suspect]
     Active Substance: QUETIAPINE
     Dosage: DOSAGE: 50 UNITS OF MEASUREMENT: MILLIGRAMS VIA ADMINISTRATION: ORAL50.0MG UNKNOWN
     Route: 048
     Dates: start: 201902
  2. VENLAFAXINE [Suspect]
     Active Substance: VENLAFAXINE HYDROCHLORIDE
     Dosage: DOSAGE: 37.5 UNITS OF MEASUREMENT: MILLIGRAMS VIA ADMINISTRATION: ORAL37.5MG UNKNOWN
     Route: 048
     Dates: start: 201803

REACTIONS (5)
  - Lactic acidosis [Recovering/Resolving]
  - Abdominal pain [Recovering/Resolving]
  - Toxicity to various agents [Recovering/Resolving]
  - Hyperhidrosis [Recovering/Resolving]
  - Vomiting [Recovering/Resolving]

NARRATIVE: CASE EVENT DATE: 20221022
